FAERS Safety Report 17710312 (Version 1)
Quarter: 2020Q2

REPORT INFORMATION
  Report Type: Other
  Country: FR (occurrence: FR)
  Receive Date: 20200427
  Receipt Date: 20200427
  Transmission Date: 20200714
  Serious: Yes (Other)
  Sender: FDA-Public Use
  Company Number: FR-DENTSPLY-2020SCDP000153

PATIENT
  Age: 6 Month
  Sex: Male

DRUGS (2)
  1. CEFTRIAXONE. [Suspect]
     Active Substance: CEFTRIAXONE
     Indication: PYELONEPHRITIS ACUTE
     Dosage: UNK
     Route: 030
     Dates: start: 20200404, end: 20200406
  2. PRILOCAINE AND LIDOCAINE [Suspect]
     Active Substance: LIDOCAINE\PRILOCAINE
     Indication: LOCAL ANAESTHESIA
     Dosage: 1 DOSAGE FORM
     Route: 003
     Dates: start: 20200404, end: 20200406

REACTIONS (1)
  - Purpura [None]

NARRATIVE: CASE EVENT DATE: 20200406
